APPROVED DRUG PRODUCT: ADVIL PM
Active Ingredient: DIPHENHYDRAMINE HYDROCHLORIDE; IBUPROFEN
Strength: 25MG;EQ 200MG FREE ACID AND POTASSIUM SALT
Dosage Form/Route: CAPSULE;ORAL
Application: N021393 | Product #001
Applicant: HALEON US HOLDINGS LLC
Approved: Dec 21, 2005 | RLD: Yes | RS: Yes | Type: OTC